FAERS Safety Report 9639166 (Version 1)
Quarter: 2013Q4

REPORT INFORMATION
  Report Type: Spontaneous
  Country: JP (occurrence: JP)
  Receive Date: 20131022
  Receipt Date: 20131022
  Transmission Date: 20140711
  Serious: Yes (Hospitalization)
  Sender: FDA-Public Use
  Company Number: PHHY2013JP114269

PATIENT
  Age: 69 Year
  Sex: Male

DRUGS (1)
  1. METHOTREXATE [Suspect]
     Indication: RHEUMATOID ARTHRITIS

REACTIONS (5)
  - Hepatic neoplasm [Recovering/Resolving]
  - Hepatic lesion [Recovering/Resolving]
  - Epstein-Barr virus infection [Recovering/Resolving]
  - Lymphoproliferative disorder [Recovering/Resolving]
  - Lymphocytic infiltration [Recovering/Resolving]
